FAERS Safety Report 9105053 (Version 5)
Quarter: 2013Q3

REPORT INFORMATION
  Report Type: Spontaneous
  Country: DE (occurrence: DE)
  Receive Date: 20130219
  Receipt Date: 20130729
  Transmission Date: 20140515
  Serious: Yes (Hospitalization, Other)
  Sender: FDA-Public Use
  Company Number: DE-AMGEN-DEUSP2013010932

PATIENT
  Age: 61 Year
  Sex: Female
  Weight: 60 kg

DRUGS (7)
  1. ENBREL [Suspect]
     Indication: ANKYLOSING SPONDYLITIS
     Dosage: 50 MG, WEEKLY
     Route: 058
     Dates: start: 20100316, end: 20121101
  2. PREDNISOLON                        /00016201/ [Concomitant]
     Dosage: UNK
  3. CALCIUM [Concomitant]
     Dosage: UNK
  4. RAMILICH [Concomitant]
     Dosage: UNK
  5. CELEBREX [Concomitant]
     Indication: SPONDYLITIS
     Dosage: 200 MG, UNK
     Route: 048
     Dates: start: 200811
  6. ALENDRONIC ACID [Concomitant]
     Indication: OSTEOPOROSIS
     Dosage: 70 MG, WEEKLY
     Route: 048
  7. CALCIUM CITRATE W/COLECALCIFEROL [Concomitant]
     Indication: OSTEOPOROSIS
     Dosage: 1-0-1
     Dates: start: 200811

REACTIONS (7)
  - Eye inflammation [Recovered/Resolved]
  - Blood alkaline phosphatase decreased [Unknown]
  - Vitamin D decreased [Unknown]
  - C-reactive protein increased [Unknown]
  - White blood cell count increased [Unknown]
  - Glomerular filtration rate decreased [Unknown]
  - Iritis [Recovered/Resolved]
